FAERS Safety Report 6083290-1 (Version None)
Quarter: 2009Q1

REPORT INFORMATION
  Report Type: 
  Country: None (occurrence: None)
  Receive Date: 20090213
  Receipt Date: 20090213
  Transmission Date: 20090719
  Serious: No
  Sender: FDA-Public Use
  Company Number: None

PATIENT
  Age: 50 Year
  Sex: Male
  Weight: 90.7194 kg

DRUGS (2)
  1. AVELOX [Suspect]
     Indication: SINUSITIS
     Dosage: 400MG ONCE DAILY PO
     Route: 048
     Dates: start: 20090203, end: 20090206
  2. MULTI VITAMIN/MINERAL SUPPLEMENTS. [Concomitant]

REACTIONS (10)
  - ARTHRALGIA [None]
  - ARTHROPATHY [None]
  - ASTHENIA [None]
  - COGNITIVE DISORDER [None]
  - DISORIENTATION [None]
  - DIZZINESS [None]
  - MYALGIA [None]
  - PALPITATIONS [None]
  - PURPURA [None]
  - URTICARIA [None]
